FAERS Safety Report 23732018 (Version 1)
Quarter: 2024Q2

REPORT INFORMATION
  Report Type: Spontaneous
  Country: MY (occurrence: MY)
  Receive Date: 20240411
  Receipt Date: 20240411
  Transmission Date: 20240716
  Serious: Yes (Other)
  Sender: FDA-Public Use
  Company Number: None

PATIENT
  Age: 44 Year
  Sex: Male

DRUGS (1)
  1. IOPAMIRO [Suspect]
     Active Substance: IOPAMIDOL
     Indication: Angiogram
     Dosage: UNK UNK, SINGLE
     Route: 042

REACTIONS (2)
  - Erythema multiforme [Recovered/Resolved]
  - Pruritus [Recovered/Resolved]
